FAERS Safety Report 8929275 (Version 1)
Quarter: 2012Q4

REPORT INFORMATION
  Report Type: Spontaneous
  Country: US (occurrence: None)
  Receive Date: 20121126
  Receipt Date: 20121126
  Transmission Date: 20130627
  Serious: Yes (Disabling)
  Sender: FDA-Public Use
  Company Number: None

PATIENT
  Age: 25 Year
  Sex: Female
  Weight: 83.46 kg

DRUGS (1)
  1. DEPO PROVERA [Suspect]
     Indication: OBESITY
     Dosage: Every 3 months

REACTIONS (17)
  - Weight increased [None]
  - Haematemesis [None]
  - Abdominal pain upper [None]
  - Headache [None]
  - Asthenia [None]
  - Fatigue [None]
  - Hot flush [None]
  - Nervousness [None]
  - Mood altered [None]
  - Muscle spasms [None]
  - Chromaturia [None]
  - Faeces pale [None]
  - Dysarthria [None]
  - Oedema peripheral [None]
  - Hypoaesthesia [None]
  - Pain in extremity [None]
  - Insomnia [None]
